FAERS Safety Report 7305157-0 (Version None)
Quarter: 2011Q1

REPORT INFORMATION
  Report Type: 
  Country: None (occurrence: None)
  Receive Date: 20110222
  Receipt Date: 20110216
  Transmission Date: 20110831
  Serious: Yes (Life-Threatening, Other)
  Sender: FDA-Public Use
  Company Number: GB-PFIZER INC-GB-WYE-G00628807

PATIENT
  Age: 19 Year
  Sex: Female
  Weight: 62 kg

DRUGS (14)
  1. ACICLOVIR [Suspect]
     Route: 065
  2. CASPOFUNGIN ACETATE [Suspect]
     Dosage: 70 MG, 1X/DAY
     Route: 042
  3. CYCLOSPORINE [Suspect]
  4. KETALAR [Suspect]
     Indication: PAIN
     Dosage: 4 MG/ML 1-6 ML/HOUR INFUSION
     Route: 042
     Dates: start: 20070921, end: 20070928
  5. NORETHISTERONE [Suspect]
     Dosage: 5 MG, 3X/DAY
     Route: 048
  6. OMEPRAZOLE [Suspect]
  7. TAZOCIN [Suspect]
     Dosage: 4.5 MG, 3X/DAY
     Route: 042
  8. VORICONAZOLE [Suspect]
     Dosage: 200 MG, 2X/DAY
     Route: 048
  9. ALLOPURINOL [Suspect]
     Dosage: 300 MG, 1X/DAY
     Route: 048
  10. MORPHINE [Suspect]
     Route: 042
  11. ONDANSETRON [Suspect]
     Dosage: 8 MG, 3X/DAY
     Route: 042
  12. ETOPOPHOS PRESERVATIVE FREE [Suspect]
     Dosage: 4650MG (DOSAGE INTERVAL UNSPECIFIED)
     Route: 042
     Dates: start: 20070915, end: 20070915
  13. PARACETAMOL [Suspect]
     Route: 042
  14. CHLORPHENAMINE [Suspect]
     Dosage: 10 MG, 4X/DAY
     Route: 042

REACTIONS (7)
  - BLOOD BILIRUBIN INCREASED [None]
  - BLOOD ALKALINE PHOSPHATASE INCREASED [None]
  - LIVER FUNCTION TEST ABNORMAL [None]
  - DILATATION INTRAHEPATIC DUCT ACQUIRED [None]
  - VENOOCCLUSIVE LIVER DISEASE [None]
  - HEPATOTOXICITY [None]
  - ALANINE AMINOTRANSFERASE INCREASED [None]
